FAERS Safety Report 22594007 (Version 4)
Quarter: 2023Q4

REPORT INFORMATION
  Report Type: Report from Study
  Country: TW (occurrence: TW)
  Receive Date: 20230613
  Receipt Date: 20231121
  Transmission Date: 20240110
  Serious: Yes (Death, Life-Threatening, Hospitalization, Other)
  Sender: FDA-Public Use
  Company Number: TW-ONO-2023TW012250

PATIENT
  Age: 64 Year
  Sex: Male
  Weight: 57.6 kg

DRUGS (58)
  1. IPILIMUMAB [Suspect]
     Active Substance: IPILIMUMAB
     Indication: Gastric cancer
     Dates: start: 20230130, end: 20230130
  2. IPILIMUMAB [Suspect]
     Active Substance: IPILIMUMAB
     Dates: start: 20230313, end: 20230313
  3. IPILIMUMAB [Suspect]
     Active Substance: IPILIMUMAB
     Dates: start: 20230424, end: 20230424
  4. OXALIPLATIN [Suspect]
     Active Substance: OXALIPLATIN
     Indication: Gastric cancer
     Dosage: 206.7 MG/M2
     Dates: start: 20230130, end: 20230130
  5. OXALIPLATIN [Suspect]
     Active Substance: OXALIPLATIN
     Dosage: 206.7 MG/M2
     Dates: start: 20230220, end: 20230220
  6. OXALIPLATIN [Suspect]
     Active Substance: OXALIPLATIN
     Dosage: 206.7 MG/M2
     Dates: start: 20230313, end: 20230313
  7. OXALIPLATIN [Suspect]
     Active Substance: OXALIPLATIN
     Dosage: 206.7 MG/M2
     Dates: start: 20230403, end: 20230403
  8. OXALIPLATIN [Suspect]
     Active Substance: OXALIPLATIN
     Dosage: 206.7 MG/M2
     Dates: start: 20230424, end: 20230424
  9. OXALIPLATIN [Suspect]
     Active Substance: OXALIPLATIN
     Dates: start: 20230522, end: 20230522
  10. GIMERACIL\OTERACIL\TEGAFUR [Suspect]
     Active Substance: GIMERACIL\OTERACIL POTASSIUM\TEGAFUR
     Indication: Gastric cancer
     Dosage: 60 MG/M2
     Route: 048
     Dates: start: 20230130, end: 20230212
  11. GIMERACIL\OTERACIL\TEGAFUR [Suspect]
     Active Substance: GIMERACIL\OTERACIL POTASSIUM\TEGAFUR
     Dosage: 60 MG/M2
     Route: 048
     Dates: start: 20230131, end: 20230213
  12. GIMERACIL\OTERACIL\TEGAFUR [Suspect]
     Active Substance: GIMERACIL\OTERACIL POTASSIUM\TEGAFUR
     Dosage: 60 MG/M2
     Route: 048
     Dates: start: 20230220, end: 20230305
  13. GIMERACIL\OTERACIL\TEGAFUR [Suspect]
     Active Substance: GIMERACIL\OTERACIL POTASSIUM\TEGAFUR
     Dosage: 60 MG/M2
     Route: 048
     Dates: start: 20230221, end: 20230306
  14. GIMERACIL\OTERACIL\TEGAFUR [Suspect]
     Active Substance: GIMERACIL\OTERACIL POTASSIUM\TEGAFUR
     Dosage: 60 MG/M2
     Route: 048
     Dates: start: 20230313, end: 20230326
  15. GIMERACIL\OTERACIL\TEGAFUR [Suspect]
     Active Substance: GIMERACIL\OTERACIL POTASSIUM\TEGAFUR
     Dosage: 60 MG/M2
     Route: 048
     Dates: start: 20230314, end: 20230327
  16. GIMERACIL\OTERACIL\TEGAFUR [Suspect]
     Active Substance: GIMERACIL\OTERACIL POTASSIUM\TEGAFUR
     Dosage: 60 MG/M2
     Route: 048
     Dates: start: 20230403, end: 20230416
  17. GIMERACIL\OTERACIL\TEGAFUR [Suspect]
     Active Substance: GIMERACIL\OTERACIL POTASSIUM\TEGAFUR
     Dosage: 60 MG/M2
     Route: 048
     Dates: start: 20230404, end: 20230417
  18. GIMERACIL\OTERACIL\TEGAFUR [Suspect]
     Active Substance: GIMERACIL\OTERACIL POTASSIUM\TEGAFUR
     Dosage: 60 MG/M2
     Route: 048
     Dates: start: 20230424, end: 20230507
  19. GIMERACIL\OTERACIL\TEGAFUR [Suspect]
     Active Substance: GIMERACIL\OTERACIL POTASSIUM\TEGAFUR
     Dosage: 60 MG/M2
     Route: 048
     Dates: start: 20230425, end: 20230508
  20. GIMERACIL\OTERACIL\TEGAFUR [Suspect]
     Active Substance: GIMERACIL\OTERACIL POTASSIUM\TEGAFUR
     Dosage: 60 MG/M2
     Route: 048
     Dates: start: 20230522, end: 20230603
  21. GIMERACIL\OTERACIL\TEGAFUR [Suspect]
     Active Substance: GIMERACIL\OTERACIL POTASSIUM\TEGAFUR
     Dosage: 60 MG/M2
     Route: 048
     Dates: start: 20230523, end: 20230603
  22. ALPRAZOLAM [Concomitant]
     Active Substance: ALPRAZOLAM
     Indication: Product used for unknown indication
     Dosage: 0.5 MG
     Dates: start: 20230107, end: 20230107
  23. ACETAMINOPHEN [Concomitant]
     Active Substance: ACETAMINOPHEN
     Indication: Gastric cancer
     Dosage: 4 DF
     Dates: start: 20230109, end: 20230114
  24. ACETAMINOPHEN [Concomitant]
     Active Substance: ACETAMINOPHEN
     Dates: start: 20230514, end: 20230529
  25. ACETAMINOPHEN [Concomitant]
     Active Substance: ACETAMINOPHEN
     Dates: start: 20230522, end: 20230523
  26. ACETAMINOPHEN [Concomitant]
     Active Substance: ACETAMINOPHEN
     Dates: start: 20230604, end: 20230605
  27. DIMETHYLPOLYSILOXANE [Concomitant]
     Indication: Gastric cancer
     Dosage: 120 MG
     Dates: start: 20230109, end: 20230116
  28. ESOMEPRAZOLE [Concomitant]
     Active Substance: ESOMEPRAZOLE
     Indication: Gastric cancer
     Dosage: 40 MG
  29. ESOMEPRAZOLE [Concomitant]
     Active Substance: ESOMEPRAZOLE
     Dosage: 40 MG
     Dates: start: 20230612, end: 20230612
  30. MOSAPRIDE [Concomitant]
     Active Substance: MOSAPRIDE
     Indication: Gastric cancer
     Dosage: 15 MG
     Dates: start: 20230109, end: 20230116
  31. APREPITANT [Concomitant]
     Active Substance: APREPITANT
     Indication: Product used for unknown indication
     Dosage: 125 MG
     Dates: start: 20230130, end: 20230201
  32. APREPITANT [Concomitant]
     Active Substance: APREPITANT
     Dosage: 125 MG
     Dates: start: 20230313, end: 20230313
  33. APREPITANT [Concomitant]
     Active Substance: APREPITANT
     Dosage: 125 MG
     Dates: start: 20230403, end: 20230403
  34. APREPITANT [Concomitant]
     Active Substance: APREPITANT
     Dosage: 125 MG
     Dates: start: 20230424, end: 20230426
  35. APREPITANT [Concomitant]
     Active Substance: APREPITANT
     Dosage: 125 MG
     Dates: start: 20230522, end: 20230524
  36. DIPHENHYDRAMINE HYDROCHLORIDE [Concomitant]
     Active Substance: DIPHENHYDRAMINE HYDROCHLORIDE
     Indication: Product used for unknown indication
     Dosage: 30 MG
     Dates: start: 20230130, end: 20230130
  37. DIPHENHYDRAMINE HYDROCHLORIDE [Concomitant]
     Active Substance: DIPHENHYDRAMINE HYDROCHLORIDE
     Dosage: 30 MG
     Dates: start: 20230220, end: 20230220
  38. DIPHENHYDRAMINE HYDROCHLORIDE [Concomitant]
     Active Substance: DIPHENHYDRAMINE HYDROCHLORIDE
     Dosage: 30 MG
     Dates: start: 20230313, end: 20230313
  39. DIPHENHYDRAMINE HYDROCHLORIDE [Concomitant]
     Active Substance: DIPHENHYDRAMINE HYDROCHLORIDE
     Dosage: 30 MG
     Dates: start: 20230403, end: 20230403
  40. DIPHENHYDRAMINE HYDROCHLORIDE [Concomitant]
     Active Substance: DIPHENHYDRAMINE HYDROCHLORIDE
     Dosage: 30 MG
     Dates: start: 20230424, end: 20230424
  41. DIPHENHYDRAMINE HYDROCHLORIDE [Concomitant]
     Active Substance: DIPHENHYDRAMINE HYDROCHLORIDE
     Dosage: 30 MG
     Dates: start: 20230522, end: 20230522
  42. NYSTATIN [Concomitant]
     Active Substance: NYSTATIN
     Indication: Product used for unknown indication
     Dosage: 10 MILLILITER
     Dates: start: 20230130, end: 20230607
  43. PALONOSETRON [Concomitant]
     Active Substance: PALONOSETRON
     Indication: Product used for unknown indication
     Dosage: 5 MILLILITER
     Dates: start: 20230130, end: 20230130
  44. PALONOSETRON [Concomitant]
     Active Substance: PALONOSETRON
     Dosage: 5 MILLILITER
     Dates: start: 20230220, end: 20230220
  45. PALONOSETRON [Concomitant]
     Active Substance: PALONOSETRON
     Dosage: 5 MILLILITER
     Dates: start: 20230313, end: 20230313
  46. PALONOSETRON [Concomitant]
     Active Substance: PALONOSETRON
     Dosage: 5 MILLILITER
     Dates: start: 20230403, end: 20230403
  47. PALONOSETRON [Concomitant]
     Active Substance: PALONOSETRON
     Dosage: 5 MILLILITER
     Dates: start: 20230424, end: 20230424
  48. PALONOSETRON [Concomitant]
     Active Substance: PALONOSETRON
     Dosage: 5 MILLILITER
     Dates: start: 20230522, end: 20230522
  49. SENNOSIDES [Concomitant]
     Active Substance: SENNOSIDES
     Indication: Gastric cancer
     Dosage: 40 MG
     Dates: start: 20230130, end: 20230306
  50. HYDROCORTISONE [Concomitant]
     Active Substance: HYDROCORTISONE
     Indication: Product used for unknown indication
     Dosage: UNK
     Route: 061
     Dates: start: 20230313
  51. ACETYLCYSTEINE [Concomitant]
     Active Substance: ACETYLCYSTEINE
     Indication: Cough
     Dosage: 600 MG
     Dates: start: 20230424, end: 20230424
  52. ACETYLCYSTEINE [Concomitant]
     Active Substance: ACETYLCYSTEINE
     Dosage: 600 MG
     Dates: start: 20230522, end: 20230529
  53. LOPERAMIDE [Concomitant]
     Active Substance: LOPERAMIDE
     Indication: Diarrhoea
     Dates: start: 20230511, end: 20230513
  54. UTRAPHEN [Concomitant]
     Indication: Gastric cancer
     Dates: start: 20230511, end: 20230529
  55. FAMOTIDINE [Concomitant]
     Active Substance: FAMOTIDINE
     Indication: Product used for unknown indication
     Dates: start: 20230605, end: 20230605
  56. FAMOTIDINE [Concomitant]
     Active Substance: FAMOTIDINE
     Dates: start: 20230512, end: 20230529
  57. HYDROCORTISONE [Concomitant]
     Active Substance: HYDROCORTISONE
     Indication: Product used for unknown indication
     Dates: start: 20230522, end: 20230523
  58. FUROSEMIDE [Concomitant]
     Active Substance: FUROSEMIDE
     Indication: Product used for unknown indication
     Dates: start: 20230424, end: 20230508

REACTIONS (2)
  - Decreased appetite [Recovering/Resolving]
  - Sepsis [Fatal]

NARRATIVE: CASE EVENT DATE: 20230511
